FAERS Safety Report 21493328 (Version 2)
Quarter: 2022Q4

REPORT INFORMATION
  Report Type: Spontaneous
  Country: US (occurrence: None)
  Receive Date: 20221021
  Receipt Date: 20221027
  Transmission Date: 20230113
  Serious: Yes (Hospitalization)
  Sender: FDA-Public Use
  Company Number: US-ROCHE-3205079

PATIENT
  Sex: Female

DRUGS (2)
  1. XOLAIR [Suspect]
     Active Substance: OMALIZUMAB
     Indication: Asthma
     Dosage: STRENGTH: 150 MG/ML?INJECT 300MG UNDER THE SKIN (SUBCUTANEOUS INJECTION) EVERY 14 DAYS
     Route: 058
     Dates: start: 20210408
  2. SYMBYAX [Concomitant]
     Active Substance: FLUOXETINE HYDROCHLORIDE\OLANZAPINE

REACTIONS (2)
  - Fall [Unknown]
  - Product complaint [Unknown]
